FAERS Safety Report 21959544 (Version 1)
Quarter: 2023Q1

REPORT INFORMATION
  Report Type: Spontaneous
  Country: CH (occurrence: CH)
  Receive Date: 20230206
  Receipt Date: 20230206
  Transmission Date: 20230418
  Serious: Yes (Other)
  Sender: FDA-Public Use
  Company Number: None

PATIENT
  Sex: Female

DRUGS (9)
  1. ESCITALOPRAM OXALATE [Suspect]
     Active Substance: ESCITALOPRAM OXALATE
     Indication: Product used for unknown indication
     Dosage: 20 MG, QD
     Route: 048
     Dates: end: 20221129
  2. VIBRAMYCIN [Suspect]
     Active Substance: DOXYCYCLINE
     Indication: Hidradenitis
     Dosage: 50 MG, QD
     Route: 048
     Dates: start: 2022, end: 20221119
  3. ERYTHROMYCIN [Suspect]
     Active Substance: ERYTHROMYCIN
     Indication: Product used for unknown indication
     Dosage: UNK
     Route: 062
     Dates: end: 20221119
  4. AMOXICILLIN [Suspect]
     Active Substance: AMOXICILLIN
     Indication: Product used for unknown indication
     Dosage: 1 G
     Route: 048
     Dates: start: 20221024, end: 20221028
  5. SACCHAROMYCES CEREVISIAE [Suspect]
     Active Substance: SACCHAROMYCES CEREVISIAE
     Indication: Product used for unknown indication
     Dosage: 200 MG, QD
     Route: 048
     Dates: start: 20221024, end: 20221028
  6. PHLOROGLUCINOL [Suspect]
     Active Substance: PHLOROGLUCINOL
     Indication: Product used for unknown indication
     Dosage: 160 MG
     Route: 048
     Dates: start: 20221024, end: 20221028
  7. DAFALGAN [Suspect]
     Active Substance: ACETAMINOPHEN
     Indication: Product used for unknown indication
     Dosage: 1 G UP TO 4?/DAY DEPENDING ON PAIN IN RESERVE; AS NECESSARY
     Route: 048
     Dates: end: 20221119
  8. TRAMADOL [Suspect]
     Active Substance: TRAMADOL
     Indication: Product used for unknown indication
     Dosage: BETWEEN 10 AND 20 DROPS DEPENDING ON PAIN/IN RESERVE IF INTENSE PAIN; ASNECESSARY
     Route: 048
     Dates: end: 20221119
  9. ANDREAFOL [Concomitant]
     Indication: Product used for unknown indication
     Dosage: 0.4 MG, QD, BEFORE MEAL
     Route: 048
     Dates: start: 20221116

REACTIONS (2)
  - Pregnancy [Unknown]
  - Abortion spontaneous [Unknown]

NARRATIVE: CASE EVENT DATE: 20221001
